FAERS Safety Report 24301820 (Version 2)
Quarter: 2024Q3

REPORT INFORMATION
  Report Type: Report from Study
  Country: PL (occurrence: PL)
  Receive Date: 20240910
  Receipt Date: 20240921
  Transmission Date: 20241016
  Serious: Yes (Other)
  Sender: AUROBINDO
  Company Number: PL-APOTEX-2015AP014755

PATIENT
  Age: 44 Year
  Sex: Male

DRUGS (4)
  1. MYCOPHENOLATE MOFETIL [Suspect]
     Active Substance: MYCOPHENOLATE MOFETIL
     Indication: Immunosuppression
     Dosage: UNK
     Route: 065
  2. BASILIXIMAB [Suspect]
     Active Substance: BASILIXIMAB
     Indication: Immunosuppression
     Dosage: UNK
     Route: 065
  3. PREDNISONE [Suspect]
     Active Substance: PREDNISONE
     Indication: Immunosuppression
     Dosage: UNK
     Route: 065
  4. TACROLIMUS [Suspect]
     Active Substance: TACROLIMUS
     Indication: Immunosuppression
     Dosage: UNK
     Route: 065

REACTIONS (9)
  - Diabetes mellitus [Unknown]
  - New onset diabetes after transplantation [Not Recovered/Not Resolved]
  - Renal impairment [Unknown]
  - Ventricular remodelling [Unknown]
  - Endothelial dysfunction [Unknown]
  - Diastolic dysfunction [Unknown]
  - Dyslipidaemia [Unknown]
  - Glomerular filtration rate decreased [Unknown]
  - Hypertension [Unknown]
